FAERS Safety Report 6363358-2 (Version None)
Quarter: 2009Q3

REPORT INFORMATION
  Report Type: 
  Country: None (occurrence: None)
  Receive Date: 20090919
  Receipt Date: 20090622
  Transmission Date: 20100115
  Serious: No
  Sender: FDA-Public Use
  Company Number: US-ABBOTT-09P-163-0582138-00

PATIENT
  Sex: Female
  Weight: 70.824 kg

DRUGS (5)
  1. HUMIRA [Suspect]
     Indication: CROHN'S DISEASE
     Route: 058
     Dates: start: 20090301
  2. SYMBICORT [Concomitant]
     Indication: ASTHMA
  3. GENERIC CLARITIN [Concomitant]
     Indication: HYPERSENSITIVITY
     Route: 048
  4. TUMS [Concomitant]
     Indication: PREGNANCY
     Route: 048
     Dates: start: 20081216
  5. VITAMIN TAB [Concomitant]
     Indication: PREGNANCY
     Route: 048
     Dates: start: 20081216

REACTIONS (4)
  - DENTAL CARIES [None]
  - IMPAIRED HEALING [None]
  - POSTOPERATIVE WOUND COMPLICATION [None]
  - TOOTHACHE [None]
